FAERS Safety Report 6957612-0 (Version None)
Quarter: 2010Q3

REPORT INFORMATION
  Report Type: 
  Country: None (occurrence: None)
  Receive Date: 20100831
  Receipt Date: 20100819
  Transmission Date: 20110219
  Serious: Yes (Hospitalization)
  Sender: FDA-Public Use
  Company Number: US-MYLANLABS-2010S1015202

PATIENT
  Age: 66 Year
  Sex: Female
  Weight: 113.4 kg

DRUGS (7)
  1. FENTANYL CITRATE [Suspect]
     Indication: PAIN
     Dosage: Q72H
     Route: 062
     Dates: start: 20070101
  2. ZOLOFT [Concomitant]
     Indication: DEPRESSION
  3. OMEPRAZOLE [Concomitant]
     Indication: GASTROOESOPHAGEAL REFLUX DISEASE
  4. CELEBREX [Concomitant]
     Indication: BONE PAIN
  5. LYRICA [Concomitant]
     Indication: FIBROMYALGIA
  6. WARFARIN SODIUM [Concomitant]
     Indication: ATRIAL FIBRILLATION
  7. VYTORIN [Concomitant]
     Indication: BLOOD CHOLESTEROL INCREASED

REACTIONS (4)
  - CHEST PAIN [None]
  - DRUG EFFECT DECREASED [None]
  - DRUG WITHDRAWAL SYNDROME [None]
  - PAIN [None]
